FAERS Safety Report 22205349 (Version 1)
Quarter: 2023Q2

REPORT INFORMATION
  Report Type: Spontaneous
  Country: CN (occurrence: CN)
  Receive Date: 20230413
  Receipt Date: 20230413
  Transmission Date: 20230721
  Serious: Yes (Hospitalization)
  Sender: FDA-Public Use
  Company Number: CN-AstraZeneca-2023A078418

PATIENT

DRUGS (6)
  1. ZOLADEX [Suspect]
     Active Substance: GOSERELIN ACETATE
     Indication: Drug therapy
     Dosage: 3.6 MILLIGRAM, EVERY 4 WEEKS
     Route: 058
     Dates: start: 20220620
  2. ZOLADEX [Suspect]
     Active Substance: GOSERELIN ACETATE
     Indication: Drug therapy
     Dosage: UNK
     Route: 065
  3. ANASTROZOLE [Suspect]
     Active Substance: ANASTROZOLE
     Indication: Endocrine disorder
     Dosage: 1 MILLIGRAM
     Route: 048
     Dates: start: 20220620
  4. PERJETA [Suspect]
     Active Substance: PERTUZUMAB
     Indication: Targeted cancer therapy
     Dosage: 840 MILLIGRAM, EVERY 3 WEEKS
     Route: 042
     Dates: start: 20220620
  5. HERCEPTIN [Suspect]
     Active Substance: TRASTUZUMAB
     Indication: Targeted cancer therapy
     Dosage: 440 MILLIGRAM, EVERY 3 WEEKS
     Route: 042
     Dates: start: 20220620
  6. VERZENIO [Suspect]
     Active Substance: ABEMACICLIB
     Indication: Targeted cancer therapy
     Dosage: 150 MILLIGRAM
     Route: 048
     Dates: start: 20220620

REACTIONS (1)
  - Dermatitis psoriasiform [Unknown]

NARRATIVE: CASE EVENT DATE: 20230328
